FAERS Safety Report 9823932 (Version 1)
Quarter: 2014Q1

REPORT INFORMATION
  Report Type: Spontaneous
  Country: US (occurrence: US)
  Receive Date: 20140116
  Receipt Date: 20140116
  Transmission Date: 20141002
  Serious: No
  Sender: FDA-Public Use
  Company Number: US-GILEAD-2011-0038064

PATIENT
  Sex: Female

DRUGS (7)
  1. LETAIRIS [Suspect]
     Indication: PULMONARY HYPERTENSION
     Route: 048
     Dates: start: 20110316
  2. ADCIRCA [Concomitant]
  3. FUROSEMIDE [Concomitant]
  4. FAMOTIDINE [Concomitant]
  5. ALENDRONATE [Concomitant]
  6. ALLOPURINOL [Concomitant]
  7. AMPYRA [Concomitant]

REACTIONS (7)
  - Local swelling [Unknown]
  - Weight increased [Unknown]
  - Nausea [Unknown]
  - Headache [Unknown]
  - Constipation [Unknown]
  - Dyspnoea [Unknown]
  - Oedema [Unknown]
